FAERS Safety Report 4770181-9 (Version None)
Quarter: 2005Q3

REPORT INFORMATION
  Report Type: 
  Country: None (occurrence: None)
  Receive Date: 20050915
  Receipt Date: 20040209
  Transmission Date: 20060218
  Serious: Yes (Hospitalization)
  Sender: FDA-Public Use
  Company Number: US-MERCK-0402USA00734

PATIENT
  Age: 56 Year
  Sex: Male
  Weight: 82 kg

DRUGS (19)
  1. VIOXX [Suspect]
     Indication: PAIN
     Route: 048
     Dates: start: 20020304, end: 20020316
  2. VIOXX [Suspect]
     Route: 048
     Dates: start: 20010701
  3. VIOXX [Suspect]
     Route: 048
     Dates: start: 20000501, end: 20000601
  4. VIOXX [Suspect]
     Route: 065
     Dates: start: 20010501
  5. VIOXX [Suspect]
     Indication: LIMB INJURY
     Route: 048
     Dates: start: 20020304, end: 20020316
  6. VIOXX [Suspect]
     Route: 048
     Dates: start: 20010701
  7. VIOXX [Suspect]
     Route: 048
     Dates: start: 20000501, end: 20000601
  8. VIOXX [Suspect]
     Route: 065
     Dates: start: 20010501
  9. ZESTRIL [Suspect]
     Indication: HYPERTENSION
     Route: 065
     Dates: start: 19840101, end: 20020316
  10. ZESTRIL [Suspect]
     Route: 065
  11. ZESTRIL [Suspect]
     Route: 065
     Dates: start: 20020410
  12. KEFLEX [Concomitant]
     Route: 065
  13. XANAX [Concomitant]
     Indication: ANXIETY
     Route: 065
  14. CIPRO [Concomitant]
     Route: 065
     Dates: start: 20000530
  15. TYLENOL W/ CODEINE [Concomitant]
     Route: 065
  16. ASPIRIN [Concomitant]
     Route: 065
  17. SECTRAL [Suspect]
     Route: 065
     Dates: end: 20020316
  18. TYLENOL [Concomitant]
     Route: 065
     Dates: start: 20000501
  19. VITAMIN B COMPLEX [Concomitant]
     Route: 065

REACTIONS (32)
  - ARTHROPATHY [None]
  - BENIGN PROSTATIC HYPERPLASIA [None]
  - CAROTID ARTERY DISEASE [None]
  - CHOLELITHIASIS [None]
  - COSTOCHONDRITIS [None]
  - DEHYDRATION [None]
  - DEPRESSION [None]
  - DIZZINESS [None]
  - DRUG HYPERSENSITIVITY [None]
  - DRY MOUTH [None]
  - ELECTROCARDIOGRAM T WAVE ABNORMAL [None]
  - EMOTIONAL DISTRESS [None]
  - EROSIVE DUODENITIS [None]
  - FLATULENCE [None]
  - GASTRITIS EROSIVE [None]
  - GASTROINTESTINAL CARCINOMA [None]
  - HEADACHE [None]
  - HELICOBACTER INFECTION [None]
  - HYPERTENSION [None]
  - INTERVERTEBRAL DISC DEGENERATION [None]
  - MEAN CELL VOLUME DECREASED [None]
  - MUSCLE SPASMS [None]
  - NEPHRITIS INTERSTITIAL [None]
  - NEPHROSCLEROSIS [None]
  - NEUROPATHY PERIPHERAL [None]
  - OSTEOARTHRITIS [None]
  - PEPTIC ULCER [None]
  - RENAL CYST [None]
  - RENAL FAILURE ACUTE [None]
  - RENAL FAILURE CHRONIC [None]
  - RENAL INJURY [None]
  - TENDONITIS [None]
